FAERS Safety Report 20101161 (Version 3)
Quarter: 2022Q1

REPORT INFORMATION
  Report Type: Spontaneous
  Country: JP (occurrence: JP)
  Receive Date: 20211123
  Receipt Date: 20220106
  Transmission Date: 20220423
  Serious: Yes (Other)
  Sender: FDA-Public Use
  Company Number: JP-PERRIGO-21JP031103

PATIENT
  Age: 29 Year
  Sex: Male

DRUGS (2)
  1. ACETAMINOPHEN [Suspect]
     Active Substance: ACETAMINOPHEN
     Indication: Pyrexia
     Dosage: 400 MG, PRN
     Route: 048
  2. LOXOPROFEN [Suspect]
     Active Substance: LOXOPROFEN
     Dosage: PER DOSE
     Route: 048
     Dates: start: 2020

REACTIONS (14)
  - Still^s disease [Recovered/Resolved]
  - Drug eruption [Recovered/Resolved]
  - Intestinal obstruction [Recovering/Resolving]
  - Liver disorder [Recovering/Resolving]
  - Epidermal necrosis [Recovering/Resolving]
  - Viral infection [Recovering/Resolving]
  - Rash [Recovered/Resolved]
  - Myocarditis [Recovering/Resolving]
  - Hyponatraemia [Recovering/Resolving]
  - Epstein-Barr virus infection [Recovering/Resolving]
  - Inappropriate antidiuretic hormone secretion [Recovering/Resolving]
  - Pericardial effusion [Recovering/Resolving]
  - Ileus [Recovering/Resolving]
  - Condition aggravated [Recovering/Resolving]

NARRATIVE: CASE EVENT DATE: 20200201
